FAERS Safety Report 4270638-3 (Version None)
Quarter: 2004Q1

REPORT INFORMATION
  Report Type: 
  Country: None (occurrence: None)
  Receive Date: 20040113
  Receipt Date: 20031229
  Transmission Date: 20041129
  Serious: Yes (Death)
  Sender: FDA-Public Use
  Company Number: A-CH2003-03994

PATIENT
  Age: 26 Year
  Sex: Female

DRUGS (2)
  1. TRACLEER [Suspect]
     Indication: PULMONARY HYPERTENSION
     Dosage: 62.5 MG, BID, ORAL; 125 MG, BID
     Route: 048
     Dates: start: 20020930, end: 20021001
  2. TRACLEER [Suspect]
     Indication: PULMONARY HYPERTENSION
     Dosage: 62.5 MG, BID, ORAL; 125 MG, BID
     Route: 048
     Dates: start: 20021001, end: 20031207

REACTIONS (3)
  - COMPLICATIONS OF TRANSPLANT SURGERY [None]
  - HEART AND LUNG TRANSPLANT [None]
  - PULMONARY OEDEMA [None]
